FAERS Safety Report 4189996 (Version 1)
Quarter: 2020Q3

REPORT INFORMATION
  Report Type: Report from Study
  Country: DE (occurrence: DE)
  Receive Date: 20040813
  Receipt Date: 20040813
  Transmission Date: 20201104
  Serious: Yes (Hospitalization)
  Sender: FDA-Public Use
  Company Number: DE-JNJFOC-20030904461

PATIENT
  Age: 45 Year
  Sex: Female

DRUGS (8)
  1. INFLIXIMAB [Suspect]
     Active Substance: INFLIXIMAB
     Indication: PSORIASIS
  2. IBUPROFEN. [Concomitant]
     Active Substance: IBUPROFEN
  3. INFLIXIMAB [Suspect]
     Active Substance: INFLIXIMAB
  4. INFLIXIMAB [Suspect]
     Active Substance: INFLIXIMAB
  5. AMOXICILLIN. [Concomitant]
     Active Substance: AMOXICILLIN
  6. PARACETAMOL [Concomitant]
     Active Substance: ACETAMINOPHEN
     Route: 049
  7. INFLIXIMAB [Suspect]
     Active Substance: INFLIXIMAB
  8. INFLIXIMAB [Suspect]
     Active Substance: INFLIXIMAB

REACTIONS (5)
  - Nausea [None]
  - Ocular hyperaemia [None]
  - Vomiting [None]
  - Angioedema [None]
  - Body temperature decreased [None]

NARRATIVE: CASE EVENT DATE: 20030917
